FAERS Safety Report 5707568-3 (Version None)
Quarter: 2008Q2

REPORT INFORMATION
  Report Type: 
  Country: None (occurrence: None)
  Receive Date: 20080416
  Receipt Date: 20080410
  Transmission Date: 20081010
  Serious: Yes (Other)
  Sender: FDA-Public Use
  Company Number: US-MERCK-0804USA02655

PATIENT
  Age: 45 Year
  Sex: Male

DRUGS (4)
  1. SINGULAIR [Suspect]
     Indication: ASTHMA
     Route: 048
     Dates: start: 19980101, end: 20080401
  2. ADVAIR HFA [Concomitant]
     Route: 065
  3. FLONASE [Concomitant]
     Route: 065
  4. HYDROCHLOROTHIAZIDE [Concomitant]
     Route: 065

REACTIONS (1)
  - SUICIDAL IDEATION [None]
